FAERS Safety Report 8640619 (Version 4)
Quarter: 2013Q1

REPORT INFORMATION
  Report Type: Spontaneous
  Country: JP (occurrence: JP)
  Receive Date: 20120628
  Receipt Date: 20130328
  Transmission Date: 20140127
  Serious: Yes (Death, Hospitalization, Other)
  Sender: FDA-Public Use
  Company Number: PHHY2012JP054796

PATIENT
  Sex: 0

DRUGS (2)
  1. ZOMETA [Suspect]
     Indication: METASTASES TO BONE
     Dosage: UNK
     Route: 041
     Dates: start: 200906, end: 201101
  2. ANAESTHETICS [Concomitant]
     Dosage: UNK

REACTIONS (21)
  - Prostate cancer [Fatal]
  - Malignant neoplasm progression [Fatal]
  - General physical health deterioration [Fatal]
  - Periodontitis [Unknown]
  - Osteonecrosis of jaw [Unknown]
  - Toothache [Unknown]
  - Exposed bone in jaw [Unknown]
  - Swelling [Unknown]
  - Abscess [Unknown]
  - Erythema [Unknown]
  - Gingival infection [Unknown]
  - Pain [Unknown]
  - Tenderness [Unknown]
  - Aphagia [Unknown]
  - Osteomyelitis [Unknown]
  - Soft tissue infection [Unknown]
  - Neoplasm [Unknown]
  - Impaired healing [Unknown]
  - Bacterial infection [Unknown]
  - Primary sequestrum [Unknown]
  - Fungal infection [Unknown]
